FAERS Safety Report 5677269-9 (Version None)
Quarter: 2008Q1

REPORT INFORMATION
  Report Type: 
  Country: None (occurrence: None)
  Receive Date: 20080324
  Receipt Date: 20080312
  Transmission Date: 20080703
  Serious: Yes (Other)
  Sender: FDA-Public Use
  Company Number: GB-TEVA-168808ISR

PATIENT
  Age: 55 Year
  Sex: Male

DRUGS (4)
  1. PREDNISOLONE [Suspect]
     Indication: DERMATITIS ATOPIC
     Dosage: 5-30MG DAILY
     Route: 048
     Dates: start: 20040101, end: 20050101
  2. PREDNISOLONE [Suspect]
     Dosage: 5-10 MG DAILY
     Route: 048
     Dates: start: 20050901, end: 20060301
  3. CYCLOSPORINE [Concomitant]
     Dates: start: 20050101
  4. AZATHIOPRINE [Concomitant]
     Dates: start: 20060101

REACTIONS (1)
  - BONE MARROW OEDEMA SYNDROME [None]
